FAERS Safety Report 16304226 (Version 2)
Quarter: 2019Q2

REPORT INFORMATION
  Report Type: Spontaneous
  Country: CN (occurrence: CN)
  Receive Date: 20190513
  Receipt Date: 20190522
  Transmission Date: 20190711
  Serious: Yes (Life-Threatening)
  Sender: FDA-Public Use
  Company Number: CN-PFIZER INC-2019186235

PATIENT
  Age: 35 Year
  Sex: Female

DRUGS (2)
  1. MISOPROSTOL. [Suspect]
     Active Substance: MISOPROSTOL
     Indication: ECTOPIC PREGNANCY
     Dosage: UNK
  2. MIFEPRISTONE [Suspect]
     Active Substance: MIFEPRISTONE
     Indication: ECTOPIC PREGNANCY
     Dosage: UNK
     Route: 048

REACTIONS (2)
  - Ruptured ectopic pregnancy [Unknown]
  - Prescription drug used without a prescription [Unknown]
